FAERS Safety Report 9337535 (Version 1)
Quarter: 2013Q2

REPORT INFORMATION
  Report Type: Spontaneous
  Country: AR (occurrence: AR)
  Receive Date: 20130607
  Receipt Date: 20130607
  Transmission Date: 20140414
  Serious: Yes (Death)
  Sender: FDA-Public Use
  Company Number: AR-BRISTOL-MYERS SQUIBB COMPANY-18983353

PATIENT
  Sex: Male

DRUGS (1)
  1. NULOJIX [Suspect]

REACTIONS (1)
  - Death [Fatal]
